FAERS Safety Report 8282612-0 (Version None)
Quarter: 2012Q2

REPORT INFORMATION
  Report Type: 
  Country: None (occurrence: None)
  Receive Date: 20120413
  Receipt Date: 20120404
  Transmission Date: 20120825
  Serious: Yes (Life-Threatening)
  Sender: FDA-Public Use
  Company Number: IT-TEVA-332091ISR

PATIENT
  Sex: Male

DRUGS (1)
  1. CEFTRIAXONE [Suspect]
     Indication: INFECTION IN AN IMMUNOCOMPROMISED HOST
     Dosage: 2 GRAM;
     Route: 042
     Dates: start: 20120330, end: 20120330

REACTIONS (4)
  - HYPOTENSION [None]
  - CYANOSIS [None]
  - LARYNGEAL OEDEMA [None]
  - RESPIRATORY FAILURE [None]
